FAERS Safety Report 8110940-8 (Version None)
Quarter: 2012Q1

REPORT INFORMATION
  Report Type: 
  Country: None (occurrence: None)
  Receive Date: 20120203
  Receipt Date: 20111018
  Transmission Date: 20120608
  Serious: Yes (Hospitalization)
  Sender: FDA-Public Use
  Company Number: US-GLAXOSMITHKLINE-A0884286A

PATIENT
  Age: 31 Year
  Sex: Female
  Weight: 150 kg

DRUGS (13)
  1. LEXAPRO [Concomitant]
  2. DARVOCET [Concomitant]
  3. DETROL [Concomitant]
  4. VENTOLIN [Concomitant]
  5. LISINOPRIL [Concomitant]
  6. LANTUS [Concomitant]
  7. VALIUM [Concomitant]
     Dates: start: 20090425
  8. SIMVASTATIN [Concomitant]
  9. LAMICTAL [Suspect]
     Indication: CONVULSION
     Dosage: 100MG UNKNOWN
     Route: 048
     Dates: start: 20090311, end: 20090425
  10. LEXAPRO [Concomitant]
  11. SIMVASTATIN [Concomitant]
  12. KEPPRA [Concomitant]
     Dates: start: 20090427
  13. LANTUS [Concomitant]

REACTIONS (3)
  - STEVENS-JOHNSON SYNDROME [None]
  - DRUG HYPERSENSITIVITY [None]
  - ERYTHEMA MULTIFORME [None]
